FAERS Safety Report 5678321-4 (Version None)
Quarter: 2008Q1

REPORT INFORMATION
  Report Type: 
  Country: None (occurrence: None)
  Receive Date: 20080320
  Receipt Date: 20080313
  Transmission Date: 20080703
  Serious: Yes (Other)
  Sender: FDA-Public Use
  Company Number: 163-21880-08030815

PATIENT
  Age: 57 Year
  Sex: Male
  Weight: 98.5 kg

DRUGS (3)
  1. REVLIMID [Suspect]
     Indication: MULTIPLE MYELOMA
     Dosage: 25 MG, QD ON DAYS 1-21, EVERY 28 DAYS, ORAL, 25 MG, QD ON DAYS 1-21  EVERY 28 DAYS, ORAL
     Dates: start: 20060307, end: 20061025
  2. REVLIMID [Suspect]
     Indication: MULTIPLE MYELOMA
     Dosage: 25 MG, QD ON DAYS 1-21, EVERY 28 DAYS, ORAL, 25 MG, QD ON DAYS 1-21  EVERY 28 DAYS, ORAL
     Dates: end: 20070116
  3. DEXAMETHASONE [Suspect]
     Indication: MULTIPLE MYELOMA
     Dosage: 40 MG, QD ON DAYS 1-4,9-12 AND 17-20, EVERY 28., ORAL

REACTIONS (5)
  - ANAEMIA [None]
  - CARPAL TUNNEL SYNDROME [None]
  - NEURALGIA [None]
  - NEUROPATHY PERIPHERAL [None]
  - RENAL FAILURE ACUTE [None]
